FAERS Safety Report 4501284-1 (Version None)
Quarter: 2004Q4

REPORT INFORMATION
  Report Type: 
  Country: None (occurrence: None)
  Receive Date: 20041110
  Receipt Date: 20041102
  Transmission Date: 20050328
  Serious: Yes (Life-Threatening, Hospitalization)
  Sender: FDA-Public Use
  Company Number: 2004242670SE

PATIENT
  Sex: Female

DRUGS (1)
  1. DEPO-PROVERA [Suspect]
     Indication: CONTRACEPTION
     Dosage: AN INJECTION, INTRAMUSCULAR
     Route: 030
     Dates: start: 20040501, end: 20040501

REACTIONS (2)
  - MEDICATION ERROR [None]
  - SEPSIS [None]
